FAERS Safety Report 25564658 (Version 1)
Quarter: 2025Q3

REPORT INFORMATION
  Report Type: Spontaneous
  Country: US (occurrence: US)
  Receive Date: 20250716
  Receipt Date: 20250716
  Transmission Date: 20251021
  Serious: No
  Sender: NOVO NORDISK
  Company Number: US-NOVOPROD-1293268

PATIENT
  Sex: Female

DRUGS (2)
  1. OZEMPIC [Suspect]
     Active Substance: SEMAGLUTIDE
     Indication: Weight control
     Route: 058
     Dates: start: 202405
  2. OZEMPIC [Suspect]
     Active Substance: SEMAGLUTIDE
     Indication: Cardiac failure
     Dosage: 1 MG, QW
     Route: 058

REACTIONS (5)
  - Heart rate decreased [Recovered/Resolved]
  - Palpitations [Unknown]
  - Dizziness [Recovered/Resolved]
  - Dizziness [Unknown]
  - Off label use [Unknown]
